FAERS Safety Report 9406518 (Version 2)
Quarter: 2013Q3

REPORT INFORMATION
  Report Type: Spontaneous
  Country: IT (occurrence: IT)
  Receive Date: 20130718
  Receipt Date: 20130823
  Transmission Date: 20140515
  Serious: Yes (Hospitalization)
  Sender: FDA-Public Use
  Company Number: IT-RANBAXY-2013R1-71064

PATIENT
  Age: 42 Year
  Sex: Female

DRUGS (2)
  1. PARACETAMOL [Suspect]
     Indication: ANALGESIC THERAPY
     Dosage: 1 DOSAGE UNIT, COMPLETE
     Route: 048
     Dates: start: 20130702, end: 20130702
  2. KEFORAL [Suspect]
     Indication: PROPHYLAXIS
     Dosage: 1 DOSAGE UNIT, COMPLETE
     Route: 048
     Dates: start: 20130702, end: 20130702

REACTIONS (3)
  - Pruritus [Recovered/Resolved]
  - Rash [Recovered/Resolved]
  - Skin reaction [Recovered/Resolved]
